FAERS Safety Report 13840252 (Version 1)
Quarter: 2017Q3

REPORT INFORMATION
  Report Type: Report from Study
  Country: CA (occurrence: CA)
  Receive Date: 20170807
  Receipt Date: 20170807
  Transmission Date: 20171127
  Serious: Yes (Hospitalization)
  Sender: FDA-Public Use
  Company Number: CA-JNJFOC-20170728356

PATIENT
  Age: 27 Year
  Sex: Male
  Weight: 97.8 kg

DRUGS (1)
  1. REMICADE [Suspect]
     Active Substance: INFLIXIMAB
     Indication: CROHN^S DISEASE
     Dosage: STRENGTH = 100 MG
     Route: 042
     Dates: start: 20140505, end: 20170728

REACTIONS (5)
  - Colectomy [Recovering/Resolving]
  - Haematochezia [Recovering/Resolving]
  - Procedural pain [Recovering/Resolving]
  - Procedural nausea [Unknown]
  - Diarrhoea [Recovering/Resolving]

NARRATIVE: CASE EVENT DATE: 201707
